FAERS Safety Report 5776756-2 (Version None)
Quarter: 2008Q2

REPORT INFORMATION
  Report Type: 
  Country: None (occurrence: None)
  Receive Date: 20080601
  Receipt Date: 20080204
  Transmission Date: 20081010
  Serious: No
  Sender: FDA-Public Use
  Company Number: US200712000392

PATIENT
  Age: 61 Year
  Sex: Female

DRUGS (3)
  1. BYETTA [Suspect]
     Dosage: SUBCUTANEOUS
     Route: 058
     Dates: start: 20071015, end: 20071116
  2. FORTEO [Concomitant]
  3. ATENOL (ATENOLOL) [Concomitant]

REACTIONS (4)
  - DIARRHOEA [None]
  - HEADACHE [None]
  - HYPERSENSITIVITY [None]
  - STOMACH DISCOMFORT [None]
